FAERS Safety Report 22251118 (Version 2)
Quarter: 2023Q2

REPORT INFORMATION
  Report Type: Spontaneous
  Country: US (occurrence: US)
  Receive Date: 20230425
  Receipt Date: 20230426
  Transmission Date: 20230722
  Serious: No
  Sender: FDA-Public Use
  Company Number: US-BRISTOL-MYERS SQUIBB COMPANY-2023-058121

PATIENT
  Age: 89 Year
  Sex: Female
  Weight: 69.85 kg

DRUGS (2)
  1. REVLIMID [Suspect]
     Active Substance: LENALIDOMIDE
     Indication: Plasma cell myeloma
     Dosage: FREQUENCY: DAILY FOR 21DAYS
     Route: 048
     Dates: start: 20230301
  2. REVLIMID [Suspect]
     Active Substance: LENALIDOMIDE
     Dosage: FREQUENCY:  3W, 1W OFF
     Route: 048

REACTIONS (3)
  - Respiratory tract congestion [Unknown]
  - Infection [Unknown]
  - Nausea [Unknown]
